FAERS Safety Report 22140696 (Version 1)
Quarter: 2023Q1

REPORT INFORMATION
  Report Type: Spontaneous
  Country: CA (occurrence: CA)
  Receive Date: 20230327
  Receipt Date: 20230327
  Transmission Date: 20230417
  Serious: Yes (Other)
  Sender: FDA-Public Use
  Company Number: CA-PFIZER INC-202300124765

PATIENT
  Sex: Female

DRUGS (12)
  1. METHOTREXATE SODIUM [Suspect]
     Active Substance: METHOTREXATE SODIUM
     Dosage: UNK
     Route: 065
  2. RUXIENCE [Suspect]
     Active Substance: RITUXIMAB-PVVR
     Indication: Granulomatosis with polyangiitis
     Dosage: UNK
     Route: 042
  3. CYCLOPHOSPHAMIDE [Suspect]
     Active Substance: CYCLOPHOSPHAMIDE
     Dosage: UNK
     Route: 065
  4. ASPIRIN [Concomitant]
     Active Substance: ASPIRIN
     Route: 065
  5. AMLODIPINE [Concomitant]
     Active Substance: AMLODIPINE BESYLATE
     Route: 065
  6. ARAVA [Concomitant]
     Active Substance: LEFLUNOMIDE
     Route: 065
  7. ATOVAQUONE [Concomitant]
     Active Substance: ATOVAQUONE
     Indication: Prophylaxis
     Dosage: UNK
     Route: 065
  8. ATOVAQUONE [Concomitant]
     Active Substance: ATOVAQUONE
     Indication: Heart rate
  9. CALCIUM [Concomitant]
     Active Substance: CALCIUM
     Route: 065
  10. METOPROLOL [Concomitant]
     Active Substance: METOPROLOL
     Route: 065
  11. TUMS [Concomitant]
     Active Substance: CALCIUM CARBONATE
     Route: 065
  12. VITAMIN D NOS [Concomitant]
     Active Substance: VITAMIN D NOS
     Route: 065

REACTIONS (12)
  - Acute kidney injury [Unknown]
  - Bone disorder [Unknown]
  - Cardiac failure congestive [Unknown]
  - Fatigue [Unknown]
  - Granulomatosis with polyangiitis [Unknown]
  - Heart rate decreased [Unknown]
  - Hypertension [Unknown]
  - Illness [Unknown]
  - Myocardial infarction [Unknown]
  - Pneumonia [Unknown]
  - Renal failure [Unknown]
  - Treatment failure [Unknown]
